FAERS Safety Report 7789954-3 (Version None)
Quarter: 2011Q3

REPORT INFORMATION
  Report Type: 
  Country: None (occurrence: None)
  Receive Date: 20110930
  Receipt Date: 20110105
  Transmission Date: 20111222
  Serious: No
  Sender: FDA-Public Use
  Company Number: US-ASTRAZENECA-2011SE00734

PATIENT
  Age: 58 Year
  Sex: Female
  Weight: 52.2 kg

DRUGS (5)
  1. SYNTHROID [Concomitant]
     Indication: HYPOTHYROIDISM
     Route: 065
  2. ARIMIDEX [Suspect]
     Indication: BREAST CANCER
     Route: 048
     Dates: end: 20100101
  3. WELLBUTRIN [Concomitant]
     Indication: AFFECTIVE DISORDER
     Route: 065
  4. ANASTROZOLE [Suspect]
     Indication: BREAST CANCER
     Route: 065
     Dates: start: 20100101, end: 20110101
  5. PRESTIQUE [Concomitant]
     Indication: AFFECTIVE DISORDER
     Route: 065

REACTIONS (1)
  - AMNESIA [None]
